FAERS Safety Report 17204326 (Version 1)
Quarter: 2019Q4

REPORT INFORMATION
  Report Type: Spontaneous
  Country: US (occurrence: US)
  Receive Date: 20191226
  Receipt Date: 20191226
  Transmission Date: 20200122
  Serious: No
  Sender: FDA-Public Use
  Company Number: US-BEH-2019110656

PATIENT
  Age: 7 Year
  Sex: Female

DRUGS (1)
  1. HIZENTRA [Suspect]
     Active Substance: HUMAN IMMUNOGLOBULIN G
     Indication: IMMUNODEFICIENCY COMMON VARIABLE
     Dosage: 3 GRAM, QW
     Route: 058
     Dates: start: 20191028

REACTIONS (2)
  - Infusion site induration [Unknown]
  - Injection site nodule [Unknown]

NARRATIVE: CASE EVENT DATE: 2019
